FAERS Safety Report 10239401 (Version 2)
Quarter: 2015Q1

REPORT INFORMATION
  Report Type: Spontaneous
  Country: US (occurrence: US)
  Receive Date: 20140616
  Receipt Date: 20150129
  Transmission Date: 20150720
  Serious: Yes (Life-Threatening, Hospitalization, Other)
  Sender: FDA-Public Use
  Company Number: US-BAYER-2014-088760

PATIENT
  Age: 30 Year
  Sex: Female
  Weight: 56.69 kg

DRUGS (7)
  1. HYOSCYAMINE [Concomitant]
     Active Substance: HYOSCYAMINE
     Indication: CROHN^S DISEASE
     Dosage: UNK
     Route: 048
     Dates: start: 2000
  2. CODEINE [Concomitant]
     Active Substance: CODEINE
     Indication: CROHN^S DISEASE
     Dosage: UNK
     Route: 048
     Dates: start: 2000
  3. FORTABS [Concomitant]
     Indication: MIGRAINE
     Dosage: UNK
     Route: 048
     Dates: start: 2008
  4. MIRENA [Suspect]
     Active Substance: LEVONORGESTREL
     Indication: CONTRACEPTION
     Dosage: 20 MCG/24HR, CONT
     Route: 015
     Dates: start: 20091210, end: 20130417
  5. PROMETHAZINE [Concomitant]
     Active Substance: PROMETHAZINE\PROMETHAZINE HYDROCHLORIDE
     Indication: MIGRAINE
     Dosage: UNK
     Route: 048
     Dates: start: 2008
  6. ASACOL [Concomitant]
     Active Substance: MESALAMINE
     Indication: CROHN^S DISEASE
     Dosage: UNK
     Route: 048
     Dates: start: 2000
  7. HYDROCODONE [Concomitant]
     Active Substance: HYDROCODONE
     Route: 048

REACTIONS (10)
  - Uterine perforation [None]
  - Injury [None]
  - Genital haemorrhage [None]
  - Post procedural infection [None]
  - Procedural pain [None]
  - General physical health deterioration [None]
  - Balance disorder [None]
  - Abdominal pain lower [None]
  - Device issue [None]
  - Menstruation irregular [None]

NARRATIVE: CASE EVENT DATE: 20130315
